FAERS Safety Report 8478708-0 (Version None)
Quarter: 2012Q2

REPORT INFORMATION
  Report Type: 
  Country: None (occurrence: None)
  Receive Date: 20120629
  Receipt Date: 20120619
  Transmission Date: 20120825
  Serious: Yes (Hospitalization, Other)
  Sender: FDA-Public Use
  Company Number: JP-JNJFOC-20120601026

PATIENT
  Sex: Female

DRUGS (7)
  1. DORIPENEM MONOHYDRATE [Suspect]
     Indication: PSEUDOMONAS INFECTION
     Route: 041
     Dates: start: 20120516, end: 20120525
  2. VANCOMYCIN [Suspect]
     Indication: STAPHYLOCOCCAL INFECTION
     Route: 041
     Dates: start: 20120429, end: 20120430
  3. CEFAZOLIN SODIUM [Concomitant]
     Indication: DIABETIC GANGRENE
     Route: 065
     Dates: start: 20120413, end: 20120422
  4. VANCOMYCIN [Suspect]
     Route: 041
     Dates: start: 20120509, end: 20120527
  5. VANCOMYCIN [Suspect]
     Route: 041
     Dates: start: 20120505, end: 20120508
  6. MEROPENEM [Concomitant]
     Indication: DIABETIC GANGRENE
     Route: 065
     Dates: start: 20120423, end: 20120428
  7. VANCOMYCIN [Suspect]
     Route: 041
     Dates: start: 20120427

REACTIONS (1)
  - APLASTIC ANAEMIA [None]
